FAERS Safety Report 5494909-8 (Version None)
Quarter: 2007Q4

REPORT INFORMATION
  Report Type: 
  Country: None (occurrence: None)
  Receive Date: 20071022
  Receipt Date: 20071010
  Transmission Date: 20080405
  Serious: Yes (Death, Life-Threatening)
  Sender: FDA-Public Use
  Company Number: WAES 0706USA04526

PATIENT
  Age: 16 Year
  Sex: Male

DRUGS (4)
  1. DECADRON [Suspect]
     Indication: EWING'S SARCOMA
     Dosage: 40 MG/M(2) DAILY;
  2. CYCLOPHOSPHAMIDE [Suspect]
     Dosage: 2000 MG/M(2) DAILY;
  3. ETOPOSIDE [Suspect]
     Dosage: 400 MG/M(2) DAILY;
  4. CARBOPLATIN [Suspect]
     Dosage: 300 MG/M(2) DAILY; IV
     Route: 042

REACTIONS (7)
  - CARDIAC ARREST [None]
  - LEFT VENTRICULAR DYSFUNCTION [None]
  - LEUKOPENIA [None]
  - NEUTROPENIA [None]
  - PNEUMONITIS [None]
  - THROMBOCYTOPENIA [None]
  - VIRAL MYOCARDITIS [None]
